FAERS Safety Report 23647634 (Version 1)
Quarter: 2024Q1

REPORT INFORMATION
  Report Type: Spontaneous
  Country: CO (occurrence: CO)
  Receive Date: 20240319
  Receipt Date: 20240319
  Transmission Date: 20240410
  Serious: Yes (Other)
  Sender: FDA-Public Use
  Company Number: CO-002147023-NVSC2024CO057210

PATIENT
  Sex: Female
  Weight: 62 kg

DRUGS (1)
  1. COSENTYX [Suspect]
     Active Substance: SECUKINUMAB
     Indication: Ankylosing spondylitis
     Dosage: 300 MG, QMO
     Route: 058
     Dates: start: 20240109

REACTIONS (7)
  - Haematochezia [Unknown]
  - Dyspnoea [Unknown]
  - Ear infection [Unknown]
  - Asthenia [Unknown]
  - Respiratory tract infection [Unknown]
  - Abscess [Unknown]
  - Conjunctivitis [Unknown]
